FAERS Safety Report 13044839 (Version 1)
Quarter: 2016Q4

REPORT INFORMATION
  Report Type: Spontaneous
  Country: US (occurrence: US)
  Receive Date: 20161220
  Receipt Date: 20161220
  Transmission Date: 20170207
  Serious: No
  Sender: FDA-Public Use
  Company Number: US-ROCHE-1050993

PATIENT
  Age: 67 Year
  Sex: Female
  Weight: 59.47 kg

DRUGS (4)
  1. ACYCLOVIR. [Concomitant]
     Active Substance: ACYCLOVIR
     Indication: HERPES ZOSTER
     Route: 048
     Dates: start: 20120803, end: 20120810
  2. ZELBORAF [Suspect]
     Active Substance: VEMURAFENIB
     Route: 048
     Dates: start: 20120518
  3. ADVIL [Concomitant]
     Active Substance: IBUPROFEN
     Indication: PAIN
     Route: 048
     Dates: start: 20120316
  4. ZELBORAF [Suspect]
     Active Substance: VEMURAFENIB
     Indication: METASTATIC MALIGNANT MELANOMA
     Route: 048
     Dates: start: 20120316, end: 20120515

REACTIONS (16)
  - Myalgia [Unknown]
  - Herpes zoster [Recovering/Resolving]
  - Chills [Unknown]
  - Nausea [Unknown]
  - Malignant melanoma [Not Recovered/Not Resolved]
  - Alopecia [Unknown]
  - Bloody discharge [Not Recovered/Not Resolved]
  - Skin mass [Unknown]
  - Skin exfoliation [Unknown]
  - Pharyngeal haemorrhage [Not Recovered/Not Resolved]
  - Dysgeusia [Not Recovered/Not Resolved]
  - Hepatic function abnormal [Recovered/Resolved]
  - Arthralgia [Unknown]
  - Sinus operation [Not Recovered/Not Resolved]
  - Fatigue [Unknown]
  - Rash [Unknown]

NARRATIVE: CASE EVENT DATE: 20120515
